FAERS Safety Report 20074405 (Version 1)
Quarter: 2021Q4

REPORT INFORMATION
  Report Type: Spontaneous
  Country: CN (occurrence: CN)
  Receive Date: 20211116
  Receipt Date: 20211116
  Transmission Date: 20220303
  Serious: Yes (Hospitalization)
  Sender: FDA-Public Use
  Company Number: CN-LUPIN PHARMACEUTICALS INC.-2021-22228

PATIENT
  Age: 62 Year
  Sex: Male

DRUGS (11)
  1. METHYLPREDNISOLONE [Suspect]
     Active Substance: METHYLPREDNISOLONE
     Indication: Immune thrombocytopenia
     Dosage: 40 MILLIGRAM, QD
     Route: 042
     Dates: start: 20190927
  2. PREDNISONE [Suspect]
     Active Substance: PREDNISONE
     Indication: Immune thrombocytopenia
     Dosage: 50 MILLIGRAM, BID
     Route: 048
  3. PREDNISONE [Suspect]
     Active Substance: PREDNISONE
     Dosage: 25 MILLIGRAM, BID
     Route: 048
  4. PREDNISONE [Suspect]
     Active Substance: PREDNISONE
     Dosage: 20 MILLIGRAM, BID
     Route: 048
  5. PREDNISONE [Suspect]
     Active Substance: PREDNISONE
     Dosage: 30 MG, QD
     Route: 048
  6. NIVOLUMAB [Concomitant]
     Active Substance: NIVOLUMAB
     Indication: Non-small cell lung cancer metastatic
     Dosage: 3 MILLIGRAM/KILOGRAM (EVERY 2 WEEKS)
     Route: 065
     Dates: start: 201812
  7. Immunoglobulin [Concomitant]
     Indication: Non-small cell lung cancer metastatic
     Dosage: 20 GRAM, QD
     Route: 042
     Dates: start: 20191003
  8. ELTROMBOPAG [Concomitant]
     Active Substance: ELTROMBOPAG
     Indication: Non-small cell lung cancer metastatic
     Dosage: 25 MILLIGRAM, QD
     Route: 065
  9. ELTROMBOPAG [Concomitant]
     Active Substance: ELTROMBOPAG
     Dosage: 50 MILLIGRAM, QD
     Route: 065
  10. ELTROMBOPAG [Concomitant]
     Active Substance: ELTROMBOPAG
     Dosage: 75 MILLIGRAM, QD
     Route: 065
  11. THROMBOPOIETIN [Concomitant]
     Active Substance: THROMBOPOIETIN
     Indication: Thrombocytopenia
     Dosage: UNK
     Route: 065

REACTIONS (1)
  - Platelet count decreased [Recovered/Resolved]

NARRATIVE: CASE EVENT DATE: 20191002
